FAERS Safety Report 5366359-6 (Version None)
Quarter: 2007Q2

REPORT INFORMATION
  Report Type: 
  Country: None (occurrence: None)
  Receive Date: 20070620
  Receipt Date: 20070620
  Transmission Date: 20071010
  Serious: Yes (Other)
  Sender: FDA-Public Use
  Company Number: None

PATIENT
  Age: 43 Year
  Sex: Female
  Weight: 59.4212 kg

DRUGS (2)
  1. CITALOPRAM 20MG SANDOZ [Suspect]
     Indication: ANXIETY
     Dosage: 10MG QDX10D PO   20MG QD PO
     Route: 048
     Dates: start: 20070410, end: 20070420
  2. CITALOPRAM 20MG SANDOZ [Suspect]
     Indication: ANXIETY
     Dosage: 10MG QDX10D PO   20MG QD PO
     Route: 048
     Dates: start: 20070421, end: 20070510

REACTIONS (5)
  - BALANCE DISORDER [None]
  - DIPLOPIA [None]
  - DYSARTHRIA [None]
  - EXTRAPYRAMIDAL DISORDER [None]
  - HEADACHE [None]
